FAERS Safety Report 6741258-3 (Version None)
Quarter: 2010Q2

REPORT INFORMATION
  Report Type: 
  Country: None (occurrence: None)
  Receive Date: 20100526
  Receipt Date: 20100517
  Transmission Date: 20101027
  Serious: Yes (Hospitalization, Other)
  Sender: FDA-Public Use
  Company Number: GB-BAYER-201024506GPV

PATIENT
  Age: 40 Year
  Sex: Male
  Weight: 65 kg

DRUGS (22)
  1. SORAFENIB [Suspect]
     Indication: HEPATIC NEOPLASM MALIGNANT
     Dosage: UNIT DOSE: 400 MG
     Dates: start: 20100406, end: 20100517
  2. SORAFENIB [Suspect]
     Dosage: UNIT DOSE: 400 MG
     Dates: start: 20100404, end: 20100405
  3. SORAFENIB [Suspect]
     Dosage: UNIT DOSE: 400 MG
     Dates: start: 20100202, end: 20100222
  4. SORAFENIB [Suspect]
     Dosage: UNIT DOSE: 400 MG
     Dates: start: 20100316, end: 20100402
  5. SORAFENIB [Suspect]
     Dosage: UNIT DOSE: 400 MG
     Dates: start: 20100223, end: 20100311
  6. ERLOTINIB OR PLACEBO [Suspect]
     Indication: HEPATIC NEOPLASM MALIGNANT
     Dosage: UNIT DOSE: 150 MG
     Dates: start: 20100202, end: 20100222
  7. ERLOTINIB OR PLACEBO [Suspect]
     Dosage: UNIT DOSE: 150 MG
     Dates: start: 20100316, end: 20100402
  8. ERLOTINIB OR PLACEBO [Suspect]
     Dosage: UNIT DOSE: 150 MG
     Dates: start: 20100404, end: 20100405
  9. ERLOTINIB OR PLACEBO [Suspect]
     Dosage: UNIT DOSE: 150 MG
     Dates: start: 20100223, end: 20100311
  10. ERLOTINIB OR PLACEBO [Suspect]
     Dosage: UNIT DOSE: 150 MG
     Dates: start: 20100406, end: 20100517
  11. DICLOFENAC [Concomitant]
     Indication: ABDOMINAL DISCOMFORT
     Dates: start: 20091201
  12. FERROUS SULFATE TAB [Concomitant]
     Indication: ANAEMIA
     Dates: start: 20091201
  13. PARACETAMOL [Concomitant]
     Indication: ABDOMINAL DISCOMFORT
     Dates: start: 20091201, end: 20100406
  14. CYCLIZINE [Concomitant]
     Indication: NAUSEA
     Dates: start: 20100223
  15. CYCLIZINE [Concomitant]
     Dates: start: 20091201, end: 20100201
  16. CYCLIZINE [Concomitant]
     Dates: start: 20100202, end: 20100222
  17. PANCREATIN [Concomitant]
     Indication: PANCREATIC DUCT OBSTRUCTION
     Dosage: 1 TABLET
     Dates: start: 20091201, end: 20100316
  18. NOZINAN [Concomitant]
     Indication: NAUSEA
     Dates: start: 20100126, end: 20100127
  19. MAXOLON [Concomitant]
     Indication: NAUSEA
     Dates: start: 20091201
  20. AVEENO CREAM [Concomitant]
     Indication: DRY SKIN
     Dates: start: 20100223
  21. ONDANSETRON [Concomitant]
     Indication: PROPHYLAXIS OF NAUSEA AND VOMITING
     Dates: start: 20100326
  22. RANITIDINE [Concomitant]
     Indication: GASTROOESOPHAGEAL REFLUX DISEASE
     Dates: start: 20100326

REACTIONS (2)
  - DEEP VEIN THROMBOSIS [None]
  - RECTAL HAEMORRHAGE [None]
